FAERS Safety Report 9082917 (Version 1)
Quarter: 2013Q1

REPORT INFORMATION
  Report Type: Spontaneous
  Country: DK (occurrence: DE)
  Receive Date: 20130131
  Receipt Date: 20130131
  Transmission Date: 20140127
  Serious: Yes (Life-Threatening, Other)
  Sender: FDA-Public Use
  Company Number: DE-FRI-1000042243

PATIENT
  Age: 53 Year
  Sex: Female

DRUGS (1)
  1. CITALOPRAM [Suspect]
     Route: 048

REACTIONS (10)
  - Coma [Recovered/Resolved]
  - Pancreatitis acute [Recovered/Resolved]
  - Pancreatic enzyme abnormality [Recovered/Resolved]
  - Type 1 diabetes mellitus [Unknown]
  - Hyperglycaemia [Unknown]
  - Hypoglycaemia [Unknown]
  - Syncope [Unknown]
  - Head injury [Unknown]
  - Rib fracture [Unknown]
  - Personality change [Unknown]
